FAERS Safety Report 14565477 (Version 3)
Quarter: 2018Q2

REPORT INFORMATION
  Report Type: Spontaneous
  Country: US (occurrence: US)
  Receive Date: 20180223
  Receipt Date: 20180526
  Transmission Date: 20180711
  Serious: Yes (Hospitalization, Disabling, Other)
  Sender: FDA-Public Use
  Company Number: US-009507513-1802USA011570

PATIENT
  Sex: Male

DRUGS (2)
  1. INSULIN [Concomitant]
     Active Substance: INSULIN NOS
  2. JANUVIA [Suspect]
     Active Substance: SITAGLIPTIN PHOSPHATE
     Indication: TYPE 2 DIABETES MELLITUS
     Dosage: ONE PILL ONCE DAILY
     Route: 048
     Dates: start: 201601

REACTIONS (3)
  - Glomerular filtration rate decreased [Unknown]
  - Diabetes mellitus inadequate control [Unknown]
  - Blood creatinine increased [Unknown]
